FAERS Safety Report 16700142 (Version 2)
Quarter: 2019Q4

REPORT INFORMATION
  Report Type: Report from Study
  Country: GB (occurrence: GB)
  Receive Date: 20190813
  Receipt Date: 20191010
  Transmission Date: 20200122
  Serious: Yes (Hospitalization, Other)
  Sender: FDA-Public Use
  Company Number: GB-AMGEN-GBRCT2019126707

PATIENT

DRUGS (4)
  1. DENOSUMAB [Suspect]
     Active Substance: DENOSUMAB
     Indication: AORTIC STENOSIS
     Dosage: UNK
     Route: 065
  2. SODIUM FLUORIDE (18F) [Concomitant]
     Dosage: 125 MEGABECQUEREL
     Route: 042
     Dates: start: 20170525, end: 20170525
  3. SODIUM FLUORIDE (18F) [Concomitant]
     Dosage: 125 MEGABECQUEREL
     Route: 042
     Dates: start: 20180619, end: 20180619
  4. ALENDRONATE [Suspect]
     Active Substance: ALENDRONATE SODIUM
     Indication: PRODUCT USED FOR UNKNOWN INDICATION
     Dosage: 17 MILLIGRAM, QWK
     Route: 048
     Dates: start: 20170628

REACTIONS (1)
  - Transcatheter aortic valve implantation [Recovered/Resolved]

NARRATIVE: CASE EVENT DATE: 20190507
